FAERS Safety Report 20026565 (Version 3)
Quarter: 2022Q1

REPORT INFORMATION
  Report Type: Report from Study
  Country: US (occurrence: US)
  Receive Date: 20211102
  Receipt Date: 20220116
  Transmission Date: 20220423
  Serious: Yes (Other)
  Sender: FDA-Public Use
  Company Number: US-REGENERON PHARMACEUTICALS, INC.-2021-97250

PATIENT
  Age: 70 Year
  Sex: Male

DRUGS (9)
  1. CASIRIVIMAB\IMDEVIMAB [Suspect]
     Active Substance: CASIRIVIMAB\IMDEVIMAB
     Indication: COVID-19
     Dosage: 1200 MG, SINGLE
     Route: 058
     Dates: start: 20211016, end: 20211016
  2. DIPHENHYDRAMINE [Concomitant]
     Active Substance: DIPHENHYDRAMINE
     Indication: Product used for unknown indication
     Dosage: UNK
     Route: 065
  3. FLOMAX                             /01280302/ [Concomitant]
     Indication: Benign prostatic hyperplasia
     Dosage: 0.4 MG, QD
     Route: 048
  4. LEVOTHYROXINE [Concomitant]
     Active Substance: LEVOTHYROXINE
     Indication: Hypothyroidism
     Dosage: 0.025 MG, QD
     Route: 048
  5. MILK OF MAGNESIA [Concomitant]
     Active Substance: MAGNESIUM HYDROXIDE
     Indication: Constipation
     Dosage: 2.4 GM= 30 ML, AT BEDTIME, PRN, 1 REFILLS
     Route: 048
  6. SERTRALINE [Concomitant]
     Active Substance: SERTRALINE HYDROCHLORIDE
     Indication: Affective disorder
     Dosage: 50 MG, QDAY, 1 REFILLS
     Route: 048
  7. SINEMET [Concomitant]
     Active Substance: CARBIDOPA\LEVODOPA
     Indication: Parkinsonism
     Dosage: 1 TAB, TID
     Route: 048
  8. TYLENOL                            /00020001/ [Concomitant]
     Indication: Osteoarthritis
     Dosage: 650 MG, Q4HRS, PRN
     Route: 048
  9. VITAMIN D3 [Concomitant]
     Active Substance: CHOLECALCIFEROL
     Indication: Vitamin D deficiency
     Dosage: UNK UNK, QDAY
     Route: 048

REACTIONS (14)
  - Lip swelling [Recovered/Resolved]
  - Type IV hypersensitivity reaction [Recovered/Resolved]
  - Productive cough [Recovered/Resolved]
  - Hypoxia [Recovered/Resolved]
  - Oxygen saturation decreased [Recovered/Resolved]
  - Bronchitis [Recovered/Resolved]
  - Atelectasis [Recovered/Resolved]
  - Confusional state [Recovered/Resolved]
  - Dyspnoea [Unknown]
  - Leukocytosis [Unknown]
  - Pericardial effusion [Unknown]
  - Cardiomegaly [Unknown]
  - Pulmonary mass [Unknown]
  - Lip ulceration [Unknown]

NARRATIVE: CASE EVENT DATE: 20211024
